FAERS Safety Report 20926378 (Version 1)
Quarter: 2022Q2

REPORT INFORMATION
  Report Type: Spontaneous
  Country: US (occurrence: US)
  Receive Date: 20220607
  Receipt Date: 20220607
  Transmission Date: 20220721
  Serious: Yes (Hospitalization, Other)
  Sender: FDA-Public Use
  Company Number: US-MLMSERVICE-20220520-3573271-1

PATIENT
  Age: 54 Year
  Sex: Male

DRUGS (7)
  1. OLANZAPINE [Suspect]
     Active Substance: OLANZAPINE
     Indication: Schizophrenia
     Dosage: 5 MG EVERY MORNING
     Route: 065
  2. OLANZAPINE [Suspect]
     Active Substance: OLANZAPINE
     Dosage: 15 MG EVERY EVENING
     Route: 065
  3. OLANZAPINE [Suspect]
     Active Substance: OLANZAPINE
     Dosage: RISPERIDONE WAS CROSS-TITRATED TO OLANZAPINE 20 MG/DAY IN DIVIDED DOSING OVER 13 DAYS.
     Route: 065
  4. DIVALPROEX SODIUM [Suspect]
     Active Substance: DIVALPROEX SODIUM
     Indication: Aggression
     Dosage: HIS EVENING DOSE OF DVP WAS TAPERED TO 250 MG
     Route: 065
  5. DIVALPROEX SODIUM [Suspect]
     Active Substance: DIVALPROEX SODIUM
     Indication: Hostility
     Dosage: 500 MG, UNKNOWN
     Route: 065
  6. RISPERIDONE [Suspect]
     Active Substance: RISPERIDONE
     Indication: Hostility
     Dosage: 6 MG/DAY IN DIVIDED DOSING OVER 9 DAYS
     Route: 065
  7. RISPERIDONE [Suspect]
     Active Substance: RISPERIDONE
     Indication: Aggression
     Dosage: 2 MG AT BEDTIME
     Route: 048

REACTIONS (2)
  - Condition aggravated [Recovered/Resolved]
  - Neutropenia [Recovered/Resolved]
